FAERS Safety Report 12882315 (Version 5)
Quarter: 2018Q3

REPORT INFORMATION
  Report Type: Report from Study
  Country: JP (occurrence: JP)
  Receive Date: 20161025
  Receipt Date: 20180711
  Transmission Date: 20181010
  Serious: Yes (Death, Hospitalization, Other)
  Sender: FDA-Public Use
  Company Number: JP-AMGEN-JPNNI2016148042

PATIENT
  Age: 67 Year
  Sex: Male

DRUGS (3)
  1. ROCALTROL [Suspect]
     Active Substance: CALCITRIOL
     Indication: PRODUCT USED FOR UNKNOWN INDICATION
     Dosage: UNK
     Route: 042
     Dates: start: 20101010, end: 20160713
  2. REGPARA [Suspect]
     Active Substance: CINACALCET HYDROCHLORIDE
     Indication: PRODUCT USED FOR UNKNOWN INDICATION
     Dosage: UNK
     Route: 048
     Dates: start: 20101010
  3. DARBEPOETIN ALFA [Suspect]
     Active Substance: DARBEPOETIN ALFA
     Indication: PRODUCT USED FOR UNKNOWN INDICATION
     Dosage: UNK
     Route: 042
     Dates: start: 20101010, end: 20170626

REACTIONS (6)
  - Gangrene [Fatal]
  - Hospitalisation [Recovering/Resolving]
  - Pleural effusion [Recovering/Resolving]
  - Fluid overload [Recovering/Resolving]
  - Sepsis [Fatal]
  - Peripheral vascular disorder [Fatal]

NARRATIVE: CASE EVENT DATE: 20160718
